FAERS Safety Report 5343810-9 (Version None)
Quarter: 2007Q2

REPORT INFORMATION
  Report Type: 
  Country: None (occurrence: None)
  Receive Date: 20070416
  Receipt Date: 20070213
  Transmission Date: 20071010
  Serious: No
  Sender: FDA-Public Use
  Company Number: 2007SP000484

PATIENT
  Age: 49 Year
  Sex: Female
  Weight: 63.5036 kg

DRUGS (9)
  1. LUNESTA [Suspect]
     Indication: INSOMNIA
     Dosage: 3MG; ORAL
     Route: 048
     Dates: start: 20050101
  2. TOPAMAX [Concomitant]
  3. FLEXERIL [Concomitant]
  4. LOPID [Concomitant]
  5. SYNTHROID [Concomitant]
  6. CYMBALTA [Concomitant]
  7. MULTIVITAMIN [Concomitant]
  8. CICLOFENAC SODIUM [Concomitant]
  9. MINERAL SUPPLEMENTS [Concomitant]

REACTIONS (3)
  - DRY MOUTH [None]
  - DYSGEUSIA [None]
  - FATIGUE [None]
